FAERS Safety Report 6427135-6 (Version None)
Quarter: 2009Q4

REPORT INFORMATION
  Report Type: 
  Country: None (occurrence: None)
  Receive Date: 20091104
  Receipt Date: 20091028
  Transmission Date: 20100525
  Serious: Yes (Other)
  Sender: FDA-Public Use
  Company Number: CHPA2009US21157

PATIENT
  Age: 76 Year
  Sex: Female
  Weight: 65.306 kg

DRUGS (1)
  1. EXCEDRIN (MIGRAINE) [Suspect]
     Indication: ARTHRITIS
     Dosage: UNK, UNK
     Route: 048

REACTIONS (1)
  - GASTRIC ULCER HAEMORRHAGE [None]
